FAERS Safety Report 24168767 (Version 1)
Quarter: 2024Q3

REPORT INFORMATION
  Report Type: Report from Study
  Country: US (occurrence: None)
  Receive Date: 20240802
  Receipt Date: 20240802
  Transmission Date: 20241017
  Serious: Yes (Life-Threatening, Disabling, Other)
  Sender: ASTRAZENECA
  Company Number: 2024A144045

PATIENT
  Sex: Male

DRUGS (4)
  1. FARXIGA [Suspect]
     Active Substance: DAPAGLIFLOZIN PROPANEDIOL
     Indication: Type 2 diabetes mellitus
     Route: 048
     Dates: start: 20230709
  2. FARXIGA [Suspect]
     Active Substance: DAPAGLIFLOZIN PROPANEDIOL
     Indication: Cardiac disorder
     Route: 048
     Dates: start: 20230709
  3. FARXIGA [Suspect]
     Active Substance: DAPAGLIFLOZIN PROPANEDIOL
     Indication: Type 2 diabetes mellitus
     Route: 048
     Dates: start: 20230907
  4. FARXIGA [Suspect]
     Active Substance: DAPAGLIFLOZIN PROPANEDIOL
     Indication: Cardiac disorder
     Route: 048
     Dates: start: 20230907

REACTIONS (7)
  - Drowning [Unknown]
  - General physical health deterioration [Not Recovered/Not Resolved]
  - Dyspnoea [Recovered/Resolved]
  - Cardiac disorder [Not Recovered/Not Resolved]
  - Cardiac arrest [Unknown]
  - Fluid retention [Unknown]
  - Product dose omission issue [Unknown]
